FAERS Safety Report 8921233 (Version 4)
Quarter: 2013Q3

REPORT INFORMATION
  Report Type: Report from Study
  Country: FR (occurrence: FR)
  Receive Date: 20121121
  Receipt Date: 20130924
  Transmission Date: 20140515
  Serious: Yes (Life-Threatening, Hospitalization)
  Sender: FDA-Public Use
  Company Number: FR-GLAXOSMITHKLINE-B0839044A

PATIENT
  Age: 69 Year
  Sex: Male
  Weight: 85 kg

DRUGS (6)
  1. OFATUMUMAB [Suspect]
     Indication: CHRONIC LYMPHOCYTIC LEUKAEMIA
     Route: 042
     Dates: start: 20120924
  2. METHYLPREDNISOLONE [Suspect]
     Indication: CHRONIC LYMPHOCYTIC LEUKAEMIA
     Dosage: 100MG TWICE PER DAY
     Route: 042
     Dates: start: 20120924
  3. OFATUMUMAB [Suspect]
     Indication: CHRONIC LYMPHOCYTIC LEUKAEMIA
     Dosage: 1000MG CYCLIC
     Route: 042
     Dates: start: 20121010
  4. METHYLPREDNISOLONE [Suspect]
     Indication: CHRONIC LYMPHOCYTIC LEUKAEMIA
     Dosage: 1000MGM2 CYCLIC
     Route: 042
     Dates: start: 20121010
  5. BENDAMUSTINE [Suspect]
     Indication: CHRONIC LYMPHOCYTIC LEUKAEMIA
     Dosage: 70MGM2 CYCLIC
     Route: 042
     Dates: start: 20121011, end: 20121012
  6. FILGRASTIM [Concomitant]
     Dosage: 1INJ PER DAY
     Route: 058

REACTIONS (7)
  - Bronchopneumonia [Recovering/Resolving]
  - Subdural haematoma [Recovered/Resolved]
  - Fall [Unknown]
  - Wrist fracture [Recovered/Resolved]
  - Febrile neutropenia [Recovered/Resolved]
  - Pseudomonal sepsis [Recovered/Resolved]
  - Febrile bone marrow aplasia [Recovered/Resolved]
